FAERS Safety Report 9095707 (Version 1)
Quarter: 2013Q1

REPORT INFORMATION
  Report Type: Spontaneous
  Country: JP (occurrence: None)
  Receive Date: 20130124
  Receipt Date: 20130124
  Transmission Date: 20140127
  Serious: Yes (Life-Threatening, Hospitalization, Other)
  Sender: FDA-Public Use
  Company Number: 2013ST000006

PATIENT
  Age: 89 Year
  Sex: Male

DRUGS (6)
  1. METFORMIN [Suspect]
     Indication: TYPE 2 DIABETES MELLITUS
  2. GLIMEPIRIDE (GLIMEPIRIDE) [Suspect]
     Indication: TYPE 2 DIABETES MELLITUS
  3. OMEPRAZOLE [Concomitant]
  4. ALLOPURINOL [Concomitant]
  5. PRAVASTATIN SODIUM [Concomitant]
  6. NAFTOPIDIL [Concomitant]

REACTIONS (2)
  - Dysarthria [None]
  - Hemiparesis [None]
